FAERS Safety Report 12166724 (Version 2)
Quarter: 2016Q2

REPORT INFORMATION
  Report Type: Spontaneous
  Country: DE (occurrence: DE)
  Receive Date: 20160310
  Receipt Date: 20160427
  Transmission Date: 20160815
  Serious: Yes (Other)
  Sender: FDA-Public Use
  Company Number: DE-009507513-1603DEU002986

PATIENT
  Sex: Male

DRUGS (1)
  1. MK-0000 [Suspect]
     Active Substance: INVESTIGATIONAL PRODUCT

REACTIONS (3)
  - Malignant neoplasm progression [Unknown]
  - Ascites [Unknown]
  - Metastases to liver [Unknown]
